FAERS Safety Report 8854800 (Version 1)
Quarter: 2012Q4

REPORT INFORMATION
  Report Type: 
  Country: FR (occurrence: FR)
  Receive Date: 20121023
  Receipt Date: 20121023
  Transmission Date: 20130627
  Serious: Yes (Death, Hospitalization, Other)
  Sender: FDA-Public Use
  Company Number: PHHY2012FR094643

PATIENT
  Age: 77 Year
  Sex: Female

DRUGS (1)
  1. AFINITOR [Suspect]
     Indication: LYMPHADENOPATHY
     Dosage: 1 DF, QD
     Route: 048

REACTIONS (3)
  - Oncologic complication [Fatal]
  - Pleural effusion [Unknown]
  - Clostridial infection [Recovered/Resolved]
